FAERS Safety Report 7731127-4 (Version None)
Quarter: 2011Q3

REPORT INFORMATION
  Report Type: 
  Country: None (occurrence: None)
  Receive Date: 20110906
  Receipt Date: 20110906
  Transmission Date: 20111222
  Serious: Yes (Hospitalization)
  Sender: FDA-Public Use
  Company Number: None

PATIENT
  Age: 44 Year
  Sex: Female
  Weight: 65.77 kg

DRUGS (1)
  1. MOBIC [Suspect]
     Indication: JOINT SWELLING
     Dosage: 1
     Route: 048
     Dates: start: 20110818, end: 20110822

REACTIONS (8)
  - SKIN DISCOLOURATION [None]
  - URTICARIA [None]
  - INSOMNIA [None]
  - RASH MACULAR [None]
  - PAIN OF SKIN [None]
  - RASH PRURITIC [None]
  - SKIN BURNING SENSATION [None]
  - SKIN SWELLING [None]
